FAERS Safety Report 22788226 (Version 3)
Quarter: 2024Q1

REPORT INFORMATION
  Report Type: Report from Study
  Country: US (occurrence: US)
  Receive Date: 20230804
  Receipt Date: 20240104
  Transmission Date: 20240410
  Serious: Yes (Life-Threatening, Hospitalization)
  Sender: FDA-Public Use
  Company Number: US-PFIZER INC-PV202300134227

PATIENT
  Age: 65 Year
  Sex: Male
  Weight: 81.1 kg

DRUGS (15)
  1. GEMTUZUMAB OZOGAMICIN [Suspect]
     Active Substance: GEMTUZUMAB OZOGAMICIN
     Indication: Acute myeloid leukaemia
     Dosage: 4.5 MG, DAY 1
     Route: 042
     Dates: start: 20230418, end: 20230418
  2. GEMTUZUMAB OZOGAMICIN [Suspect]
     Active Substance: GEMTUZUMAB OZOGAMICIN
     Dosage: 4.5 MG, DAY 4
     Route: 042
     Dates: start: 20230421, end: 20230421
  3. GEMTUZUMAB OZOGAMICIN [Suspect]
     Active Substance: GEMTUZUMAB OZOGAMICIN
     Dosage: 4.5 MG, DAY 7
     Route: 042
     Dates: start: 20230424, end: 20230424
  4. GEMTUZUMAB OZOGAMICIN [Suspect]
     Active Substance: GEMTUZUMAB OZOGAMICIN
     Dosage: 4.5 MG, ONCE DAY 1
     Route: 042
     Dates: start: 20230612, end: 20230612
  5. CYTARABINE [Suspect]
     Active Substance: CYTARABINE
     Indication: Acute myeloid leukaemia
     Dosage: 210 MG, EVERY DAY FOR DAYS 1-7 (100MG/M2)
     Route: 042
     Dates: start: 20230418, end: 20230425
  6. CYTARABINE [Suspect]
     Active Substance: CYTARABINE
     Dosage: 3940 MG, (2000MG/M2) BID ON DAY 1
     Route: 042
     Dates: start: 20230612, end: 20230612
  7. CYTARABINE [Suspect]
     Active Substance: CYTARABINE
     Dosage: 3940 MG, (2000MG/M2) BID ON DAY 3
     Route: 042
     Dates: start: 20230614, end: 20230614
  8. CYTARABINE [Suspect]
     Active Substance: CYTARABINE
     Dosage: 3940 MG, (2000MG/M2) BID ON DAY 5
     Route: 042
     Dates: start: 20230616, end: 20230616
  9. CYTARABINE [Suspect]
     Active Substance: CYTARABINE
     Dosage: 2955 MG, (1500MG/M2) BID ON DAY 1
     Route: 042
     Dates: start: 20230717, end: 20230717
  10. CYTARABINE [Suspect]
     Active Substance: CYTARABINE
     Dosage: 2955 MG, (1500MG/M2) BID ON DAY 3
     Route: 042
     Dates: start: 20230719, end: 20230719
  11. CYTARABINE [Suspect]
     Active Substance: CYTARABINE
     Dosage: 2955 MG, (1500MG/M2) BID ON DAY 5
     Route: 042
     Dates: start: 20230721, end: 20230721
  12. MIDOSTAURIN [Suspect]
     Active Substance: MIDOSTAURIN
     Indication: Acute myeloid leukaemia
     Dosage: 50 MG, BID ON DAYS 8-21
     Route: 048
     Dates: start: 20230425, end: 20230508
  13. MIDOSTAURIN [Suspect]
     Active Substance: MIDOSTAURIN
     Dosage: 50 MG, BID ON DAYS 8-12
     Route: 048
     Dates: start: 20230619, end: 20230623
  14. MIDOSTAURIN [Suspect]
     Active Substance: MIDOSTAURIN
     Dosage: 50 MG, DAYS 8-21 BID
     Route: 048
     Dates: start: 20230724, end: 20230729
  15. MIDOSTAURIN [Suspect]
     Active Substance: MIDOSTAURIN
     Dosage: 50 MG, DAYS 8-21 BID
     Route: 048
     Dates: start: 20230731, end: 20230805

REACTIONS (2)
  - Abscess intestinal [Recovered/Resolved]
  - Diverticulitis [Recovered/Resolved]

NARRATIVE: CASE EVENT DATE: 20230729
